FAERS Safety Report 13006670 (Version 5)
Quarter: 2017Q3

REPORT INFORMATION
  Report Type: Report from Study
  Country: US (occurrence: US)
  Receive Date: 20161207
  Receipt Date: 20170915
  Transmission Date: 20171127
  Serious: Yes (Hospitalization)
  Sender: FDA-Public Use
  Company Number: US-UCBSA-2016015190

PATIENT
  Sex: Female

DRUGS (3)
  1. B6 [Concomitant]
     Active Substance: PYRIDOXINE HYDROCHLORIDE
     Indication: MOOD SWINGS
  2. LEVETIRACETAM. [Suspect]
     Active Substance: LEVETIRACETAM
     Indication: SEIZURE
     Dosage: UNK
  3. VITAMIN B12 [Concomitant]
     Active Substance: CYANOCOBALAMIN
     Indication: PRODUCT USED FOR UNKNOWN INDICATION
     Dosage: UNK

REACTIONS (13)
  - Feeling abnormal [Unknown]
  - Seizure [Recovered/Resolved]
  - Weight increased [Unknown]
  - Depression [Unknown]
  - Change in seizure presentation [Recovered/Resolved]
  - Mood swings [Unknown]
  - Crying [Unknown]
  - Generalised tonic-clonic seizure [Recovered/Resolved]
  - Emotional disorder [Unknown]
  - Anger [Unknown]
  - Somnolence [Unknown]
  - Alopecia [Unknown]
  - Fatigue [Unknown]
